FAERS Safety Report 7715149-5 (Version None)
Quarter: 2011Q3

REPORT INFORMATION
  Report Type: 
  Country: None (occurrence: None)
  Receive Date: 20110829
  Receipt Date: 20110822
  Transmission Date: 20111222
  Serious: Yes (Hospitalization, Other)
  Sender: FDA-Public Use
  Company Number: US-BRISTOL-MYERS SQUIBB COMPANY-15990849

PATIENT
  Age: 70 Year
  Sex: Male
  Weight: 82 kg

DRUGS (1)
  1. ORENCIA [Suspect]
     Dosage: INFUSION.
     Route: 042
     Dates: start: 20080501, end: 20110804

REACTIONS (3)
  - URINARY TRACT INFECTION [None]
  - KNEE OPERATION [None]
  - PROSTATIC SPECIFIC ANTIGEN INCREASED [None]
